FAERS Safety Report 10674208 (Version 5)
Quarter: 2015Q2

REPORT INFORMATION
  Report Type: Spontaneous
  Country: TW (occurrence: TW)
  Receive Date: 20141224
  Receipt Date: 20150403
  Transmission Date: 20150821
  Serious: Yes (Death, Hospitalization)
  Sender: FDA-Public Use
  Company Number: TW-PFIZER INC-2014347392

PATIENT
  Age: 67 Year
  Sex: Male

DRUGS (2)
  1. SUTENT [Suspect]
     Active Substance: SUNITINIB MALATE
     Indication: RENAL CELL CARCINOMA
     Dosage: 37.5 MG, DAILY, TWO WEEKS ON AND ONE WEEK OFF
     Route: 048
     Dates: start: 20141114, end: 20141129
  2. SUTENT [Suspect]
     Active Substance: SUNITINIB MALATE
     Dosage: 37.5 MG, DAILY, TWO WEEKS ON AND ONE WEEK OFF
     Route: 048
     Dates: start: 20141229, end: 20150301

REACTIONS (7)
  - Abdominal distension [Recovered/Resolved]
  - Renal cell carcinoma [Unknown]
  - Abdominal pain [Recovered/Resolved]
  - Death [Fatal]
  - Disease progression [Unknown]
  - Intestinal obstruction [Recovered/Resolved]
  - Yellow skin [Unknown]

NARRATIVE: CASE EVENT DATE: 20141206
